FAERS Safety Report 9069971 (Version 1)
Quarter: 2013Q1

REPORT INFORMATION
  Report Type: Report from Study
  Country: US (occurrence: US)
  Receive Date: 20130131
  Receipt Date: 20130131
  Transmission Date: 20140127
  Serious: No
  Sender: FDA-Public Use
  Company Number: US-ABBOTT-12P-163-1005929-00

PATIENT
  Age: 47 Year
  Sex: Female

DRUGS (13)
  1. HUMIRA [Suspect]
     Indication: COLITIS MICROSCOPIC
     Dosage: LOADING DOSE
     Dates: start: 20121105
  2. PREDNISONE [Concomitant]
     Indication: PRODUCT USED FOR UNKNOWN INDICATION
     Dosage: 40MG DAILY
     Dates: end: 20121108
  3. PREDNISONE [Concomitant]
     Dosage: TAPERED DOWN TO 35MG DAILY
     Dates: start: 20121109
  4. TRILIPIX [Concomitant]
     Indication: BLOOD TRIGLYCERIDES INCREASED
     Dosage: 135MG DAILY
  5. PROMETHAZINE [Concomitant]
     Indication: NAUSEA
  6. TOPAMAX [Concomitant]
     Indication: MIGRAINE
  7. PROTONIX [Concomitant]
     Indication: GASTROOESOPHAGEAL REFLUX DISEASE
     Dosage: 40MG DAILY
  8. METOPROLOL [Concomitant]
     Indication: HYPERTENSION
     Dosage: 100MG DAILY
  9. VIT D3 [Concomitant]
     Indication: PRODUCT USED FOR UNKNOWN INDICATION
     Dosage: 2000MG DAILY
  10. VITAMIN B12 [Concomitant]
     Indication: PRODUCT USED FOR UNKNOWN INDICATION
     Dosage: 1000MG DAILY
  11. TEMAZEPAM [Concomitant]
     Indication: INSOMNIA
     Dosage: 30MG DAILY
  12. GABAPENTIN [Concomitant]
     Indication: COLITIS
  13. MAGNESIUM [Concomitant]
     Indication: UNEVALUABLE EVENT

REACTIONS (2)
  - Back pain [Not Recovered/Not Resolved]
  - Headache [Not Recovered/Not Resolved]
